FAERS Safety Report 7247838-3 (Version None)
Quarter: 2011Q1

REPORT INFORMATION
  Report Type: 
  Country: None (occurrence: None)
  Receive Date: 20110127
  Receipt Date: 20110114
  Transmission Date: 20110831
  Serious: Yes (Hospitalization, Other)
  Sender: FDA-Public Use
  Company Number: ES-ELI_LILLY_AND_COMPANY-ES201101003741

PATIENT
  Sex: Female
  Weight: 79 kg

DRUGS (8)
  1. SOTAPOR [Concomitant]
     Dosage: 160 MG, 1/4 EACH EVENING
     Route: 048
     Dates: end: 20110111
  2. SOTAPOR [Concomitant]
     Dosage: 160 MG, 1/2 EVERY 12 HOURS
     Route: 048
     Dates: start: 20110111
  3. DIOVAN [Concomitant]
     Indication: HYPERTENSION
     Dosage: 160 MG, DAILY (1/D)
     Route: 048
  4. OPIREN [Concomitant]
     Indication: PROPHYLAXIS
     Dosage: 30 MG, DAILY (1/D)
     Route: 048
  5. ASPIRIN [Concomitant]
     Indication: ARRHYTHMIA
     Dosage: 100 MG, DAILY (1/D)
     Route: 048
  6. FORTEO [Suspect]
     Indication: OSTEOPOROSIS
     Dosage: 20 UG, DAILY (1/D)
     Route: 058
     Dates: start: 20101216, end: 20110111
  7. CARDYL [Concomitant]
     Indication: BLOOD CHOLESTEROL INCREASED
     Dosage: 20 MG, DAILY (1/D)
     Route: 048
  8. SOTAPOR [Concomitant]
     Indication: ARRHYTHMIA
     Dosage: 160 MG, 1/2 EACH MORNING
     Route: 048
     Dates: end: 20110111

REACTIONS (5)
  - OEDEMA PERIPHERAL [None]
  - CHEST PAIN [None]
  - TACHYCARDIA [None]
  - MUSCLE SPASMS [None]
  - ABDOMINAL PAIN UPPER [None]
